FAERS Safety Report 21361439 (Version 1)
Quarter: 2022Q3

REPORT INFORMATION
  Report Type: Spontaneous
  Country: US (occurrence: US)
  Receive Date: 20220921
  Receipt Date: 20220921
  Transmission Date: 20221027
  Serious: Yes (Other)
  Sender: FDA-Public Use
  Company Number: US-GRUNENTHAL-2022-107639

PATIENT
  Age: 33 Year
  Sex: Female

DRUGS (1)
  1. QUTENZA [Suspect]
     Active Substance: CAPSAICIN
     Indication: Diabetic neuropathy
     Dosage: 4 DOSAGE FORM
     Route: 061
     Dates: start: 20220913, end: 20220913

REACTIONS (3)
  - Burning sensation [Unknown]
  - Feeling hot [Unknown]
  - Pain in extremity [Unknown]
